FAERS Safety Report 16210773 (Version 1)
Quarter: 2019Q2

REPORT INFORMATION
  Report Type: Report from Study
  Country: DE (occurrence: DE)
  Receive Date: 20190418
  Receipt Date: 20190418
  Transmission Date: 20190711
  Serious: No
  Sender: FDA-Public Use
  Company Number: DE-ROCHE-2305240

PATIENT
  Sex: Female
  Weight: 55 kg

DRUGS (13)
  1. RANITIDIN [Concomitant]
     Active Substance: RANITIDINE HYDROCHLORIDE
     Route: 048
     Dates: start: 20180701, end: 20180703
  2. SATIVEX [Concomitant]
     Active Substance: NABIXIMOLS
     Indication: PAIN
     Route: 048
     Dates: start: 20160719
  3. AERIUS (GERMANY) [Concomitant]
     Route: 048
     Dates: start: 20180715, end: 20180717
  4. RANITIDIN [Concomitant]
     Active Substance: RANITIDINE HYDROCHLORIDE
     Route: 048
     Dates: start: 20180715, end: 20180717
  5. PREDNISOLUT [Concomitant]
     Active Substance: PREDNISOLONE
     Route: 042
     Dates: start: 20180702, end: 20180702
  6. OCREVUS [Suspect]
     Active Substance: OCRELIZUMAB
     Route: 042
     Dates: start: 20190116, end: 20190116
  7. AERIUS (GERMANY) [Concomitant]
     Route: 048
     Dates: start: 20180701, end: 20180703
  8. MICTONORM [Concomitant]
     Active Substance: PROPIVERINE HYDROCHLORIDE
     Dosage: ONGOING
     Route: 048
  9. OCREVUS [Suspect]
     Active Substance: OCRELIZUMAB
     Indication: MULTIPLE SCLEROSIS
     Route: 042
     Dates: start: 20180702, end: 20180716
  10. PREDNISOLUT [Concomitant]
     Active Substance: PREDNISOLONE
     Route: 042
     Dates: start: 20180716, end: 20180716
  11. DEKRISTOL [Concomitant]
     Active Substance: CHOLECALCIFEROL
     Indication: VITAMIN D DEFICIENCY
     Dosage: ONGOING
     Route: 048
     Dates: start: 20160719
  12. ISOZID [Concomitant]
     Active Substance: ISONIAZID
     Indication: LATENT TUBERCULOSIS
     Route: 048
     Dates: start: 20180514, end: 20190107
  13. SERTRALINE [Concomitant]
     Active Substance: SERTRALINE HYDROCHLORIDE
     Dosage: ONGOING
     Route: 048

REACTIONS (1)
  - Herpes zoster [Not Recovered/Not Resolved]
